FAERS Safety Report 8769567 (Version 3)
Quarter: 2012Q4

REPORT INFORMATION
  Report Type: 
  Country: US (occurrence: US)
  Receive Date: 20120905
  Receipt Date: 20121019
  Transmission Date: 20130627
  Serious: Yes (Death, Hospitalization, Other)
  Sender: FDA-Public Use
  Company Number: US-PFIZER INC-2012193394

PATIENT
  Age: 68 Year
  Sex: Male
  Weight: 67.57 kg

DRUGS (9)
  1. INLYTA [Suspect]
     Indication: RENAL CELL CARCINOMA STAGE IV
     Dosage: 5 mg, 2x/day (q 28x12)
     Route: 048
     Dates: start: 20120528, end: 20120803
  2. VOTRIENT [Concomitant]
     Indication: RENAL CANCER
     Dosage: UNK
     Dates: start: 20111116, end: 20120612
  3. ALLOPURINOL [Concomitant]
     Dosage: 100 mg, 1 q Day
     Route: 048
     Dates: start: 20120801
  4. DEXAMETHASONE [Concomitant]
     Indication: APPETITE DISORDER
     Dosage: 2 mg, 2 twice a day (2x/day)
     Route: 048
     Dates: start: 20120521
  5. FUROSEMIDE [Concomitant]
     Dosage: 40 mg, 1 q day
     Route: 048
     Dates: start: 20120521
  6. HYDROCODONE W/ACETAMINOPHEN [Concomitant]
     Dosage: 2.5mg/325mg, PRN
     Route: 048
     Dates: start: 20120702
  7. POTASSIUM CHLORIDE [Concomitant]
     Dosage: 10 %, UNK
     Route: 048
     Dates: start: 20120716
  8. POTASSIUM CHLORIDE ER [Concomitant]
     Dosage: 10 mg, 1 Q day
     Route: 048
     Dates: start: 20120521
  9. PREDNISONE [Concomitant]
     Dosage: 50 mg, UNK

REACTIONS (19)
  - Cardiac failure [Fatal]
  - Disease progression [Fatal]
  - Renal cell carcinoma stage IV [Fatal]
  - Cardiac disorder [Not Recovered/Not Resolved]
  - Haemorrhage [Unknown]
  - Dizziness [Unknown]
  - Asthenia [Unknown]
  - Dyspnoea exertional [Unknown]
  - Joint swelling [Unknown]
  - Fatigue [Unknown]
  - Oedema peripheral [Unknown]
  - Dyspnoea [Unknown]
  - Constipation [Unknown]
  - Musculoskeletal stiffness [Unknown]
  - Arthralgia [Unknown]
  - Back pain [Unknown]
  - Insomnia [Unknown]
  - Dysphagia [Unknown]
  - Eyelid disorder [Unknown]
